FAERS Safety Report 5498301-1 (Version None)
Quarter: 2007Q4

REPORT INFORMATION
  Report Type: 
  Country: None (occurrence: None)
  Receive Date: 20071025
  Receipt Date: 20070427
  Transmission Date: 20080405
  Serious: No
  Sender: FDA-Public Use
  Company Number: A0649060A

PATIENT
  Age: 78 Year
  Sex: Female

DRUGS (8)
  1. ADVAIR DISKUS 100/50 [Suspect]
     Indication: RESPIRATORY TRACT CONGESTION
     Dosage: 1MG TWICE PER DAY
     Route: 055
     Dates: start: 20070427
  2. ZETIA [Concomitant]
  3. LIPITOR [Concomitant]
  4. MAXZIDE [Concomitant]
  5. ACYCLOVIR [Concomitant]
  6. PRILOSEC [Concomitant]
  7. AMOXICILLIN [Concomitant]
  8. LOPRESSOR [Concomitant]

REACTIONS (2)
  - COUGH [None]
  - HEADACHE [None]
